FAERS Safety Report 14305837 (Version 1)
Quarter: 2017Q4

REPORT INFORMATION
  Report Type: Spontaneous
  Country: US (occurrence: US)
  Receive Date: 20171219
  Receipt Date: 20171219
  Transmission Date: 20180321
  Serious: No
  Sender: FDA-Public Use
  Company Number: US-LUNDBECK-DKLU2036516

PATIENT
  Age: 68 Year
  Sex: Male

DRUGS (1)
  1. NORTHERA [Suspect]
     Active Substance: DROXIDOPA
     Indication: PRODUCT USED FOR UNKNOWN INDICATION
     Route: 065
     Dates: start: 20170829

REACTIONS (4)
  - Dyspnoea [Unknown]
  - Headache [Unknown]
  - Blood pressure increased [Unknown]
  - Supine hypertension [Unknown]

NARRATIVE: CASE EVENT DATE: 20170829
